FAERS Safety Report 8518213-6 (Version None)
Quarter: 2012Q3

REPORT INFORMATION
  Report Type: 
  Country: None (occurrence: None)
  Receive Date: 20120718
  Receipt Date: 20111108
  Transmission Date: 20120928
  Serious: No
  Sender: FDA-Public Use
  Company Number: US-BRISTOL-MYERS SQUIBB COMPANY-16222051

PATIENT
  Age: 48 Year
  Sex: Male
  Weight: 86 kg

DRUGS (2)
  1. WARFARIN SODIUM [Suspect]
     Indication: THROMBOSIS
     Dates: start: 20111006
  2. LOVENOX [Suspect]
     Indication: THROMBOSIS
     Dates: start: 20111006

REACTIONS (1)
  - INTERNATIONAL NORMALISED RATIO ABNORMAL [None]
